FAERS Safety Report 4702276-X (Version None)
Quarter: 2005Q2

REPORT INFORMATION
  Report Type: 
  Country: None (occurrence: None)
  Receive Date: 20050629
  Receipt Date: 20050620
  Transmission Date: 20051028
  Serious: Yes (Other)
  Sender: FDA-Public Use
  Company Number: ES-ABBOTT-05P-144-0304161-00

PATIENT
  Age: 27 Year
  Sex: Female
  Weight: 70 kg

DRUGS (1)
  1. FERROUS SULFATE (FERO GRADUMET TABLETS) [Suspect]
     Indication: ANAEMIA
     Route: 048

REACTIONS (5)
  - ABDOMINAL PAIN [None]
  - DRUG EXPOSURE DURING PREGNANCY [None]
  - OVERDOSE [None]
  - SUICIDE ATTEMPT [None]
  - VOMITING [None]
